FAERS Safety Report 20983705 (Version 1)
Quarter: 2022Q2

REPORT INFORMATION
  Report Type: Spontaneous
  Country: UZ (occurrence: UZ)
  Receive Date: 20220620
  Receipt Date: 20220620
  Transmission Date: 20220721
  Serious: Yes (Other)
  Sender: FDA-Public Use
  Company Number: UZ-JNJFOC-20220624728

PATIENT
  Age: 65 Year
  Sex: Male
  Weight: 75 kg

DRUGS (10)
  1. SIRTURO [Suspect]
     Active Substance: BEDAQUILINE FUMARATE
     Indication: Tuberculosis
     Dosage: DOSE: 400}200
     Route: 048
     Dates: start: 20210709, end: 20210805
  2. SIRTURO [Suspect]
     Active Substance: BEDAQUILINE FUMARATE
     Dosage: DOSE: 400}200
     Route: 048
     Dates: end: 20210824
  3. DELAMANID [Suspect]
     Active Substance: DELAMANID
     Indication: Tuberculosis
     Dosage: DOSE: 200
     Route: 048
     Dates: start: 20210709, end: 20210805
  4. DELAMANID [Suspect]
     Active Substance: DELAMANID
     Dosage: DOSE: 200
     Route: 048
     Dates: start: 20210813, end: 20210818
  5. CLOFAZIMINE [Suspect]
     Active Substance: CLOFAZIMINE
     Indication: Tuberculosis
     Dosage: DOSE: 100
     Route: 048
     Dates: start: 20210709, end: 20210805
  6. CLOFAZIMINE [Suspect]
     Active Substance: CLOFAZIMINE
     Dosage: DOSE: 100
     Route: 048
     Dates: start: 20210811
  7. CYCLOSERINE [Suspect]
     Active Substance: CYCLOSERINE
     Indication: Tuberculosis
     Dosage: DOSE: 500
     Route: 048
     Dates: start: 20210709, end: 20210805
  8. CYCLOSERINE [Suspect]
     Active Substance: CYCLOSERINE
     Dosage: DOSE: 500
     Route: 048
     Dates: start: 20210811
  9. LINEZOLID [Suspect]
     Active Substance: LINEZOLID
     Indication: Tuberculosis
     Dosage: DOSE: 600
     Route: 048
     Dates: start: 20210709, end: 20210805
  10. LINEZOLID [Suspect]
     Active Substance: LINEZOLID
     Dosage: DOSE: 600
     Route: 048
     Dates: start: 20210811

REACTIONS (5)
  - Arrhythmia [Recovering/Resolving]
  - Myocardial infarction [Recovering/Resolving]
  - Chest pain [Recovering/Resolving]
  - Dizziness [Recovering/Resolving]
  - Palpitations [Recovering/Resolving]

NARRATIVE: CASE EVENT DATE: 20210801
